FAERS Safety Report 25290632 (Version 3)
Quarter: 2025Q2

REPORT INFORMATION
  Report Type: Spontaneous
  Country: RO (occurrence: RO)
  Receive Date: 20250510
  Receipt Date: 20250613
  Transmission Date: 20250717
  Serious: Yes (Death, Hospitalization, Other)
  Sender: TAKEDA
  Company Number: RO-TAKEDA-2025TUS044299

PATIENT
  Age: 76 Year
  Sex: Male

DRUGS (10)
  1. OBIZUR [Suspect]
     Active Substance: SUSOCTOCOG ALFA
     Indication: Acquired haemophilia
     Dates: start: 20241213, end: 20241213
  2. OBIZUR [Suspect]
     Active Substance: SUSOCTOCOG ALFA
     Dates: start: 20241219, end: 20241219
  3. OBIZUR [Suspect]
     Active Substance: SUSOCTOCOG ALFA
  4. OBIZUR [Suspect]
     Active Substance: SUSOCTOCOG ALFA
     Dates: start: 20250113, end: 20250113
  5. OBIZUR [Suspect]
     Active Substance: SUSOCTOCOG ALFA
  6. OBIZUR [Suspect]
     Active Substance: SUSOCTOCOG ALFA
  7. OXCARBAZEPINE [Concomitant]
     Active Substance: OXCARBAZEPINE
     Dosage: 300 MILLIGRAM, BID
  8. DONEPEZIL [Concomitant]
     Active Substance: DONEPEZIL
     Dosage: 5 MILLIGRAM, QD
  9. LINEZOLID [Concomitant]
     Active Substance: LINEZOLID
  10. PIPERACILLIN SODIUM\TAZOBACTAM SODIUM [Concomitant]
     Active Substance: PIPERACILLIN SODIUM\TAZOBACTAM SODIUM

REACTIONS (25)
  - Multiple organ dysfunction syndrome [Fatal]
  - Pulmonary sepsis [Fatal]
  - Urosepsis [Fatal]
  - Dyspnoea [Fatal]
  - Therapeutic product effect incomplete [Unknown]
  - Post procedural contusion [Unknown]
  - Blood loss anaemia [Unknown]
  - Skin haemorrhage [Recovering/Resolving]
  - Muscle haemorrhage [Recovering/Resolving]
  - Acute respiratory failure [Recovering/Resolving]
  - Poor venous access [Recovering/Resolving]
  - Eating disorder [Recovering/Resolving]
  - Epilepsy [Unknown]
  - Mixed dementia [Unknown]
  - Confusional state [Unknown]
  - Speech disorder [Unknown]
  - Eyelid ptosis [Unknown]
  - Oral discomfort [Unknown]
  - Vessel puncture site haematoma [Unknown]
  - Haematoma [Unknown]
  - Pneumonia klebsiella [Unknown]
  - Pneumonia pseudomonal [Unknown]
  - Pleurisy [Unknown]
  - Dehydration [Unknown]
  - Proteus test positive [Unknown]

NARRATIVE: CASE EVENT DATE: 20241213
